FAERS Safety Report 7623975-6 (Version None)
Quarter: 2011Q3

REPORT INFORMATION
  Report Type: 
  Country: None (occurrence: None)
  Receive Date: 20110720
  Receipt Date: 20110516
  Transmission Date: 20111222
  Serious: Yes (Death)
  Sender: FDA-Public Use
  Company Number: US-BRISTOL-MYERS SQUIBB COMPANY-15748387

PATIENT
  Age: 92 Year
  Sex: Male

DRUGS (1)
  1. YERVOY [Suspect]
     Dosage: 1DF:1 DOSE

REACTIONS (1)
  - NEOPLASM MALIGNANT [None]
